FAERS Safety Report 25390113 (Version 7)
Quarter: 2025Q4

REPORT INFORMATION
  Report Type: Spontaneous
  Country: US (occurrence: US)
  Receive Date: 20250603
  Receipt Date: 20251208
  Transmission Date: 20260118
  Serious: Yes (Other)
  Sender: BAYER HEALTHCARE PHARMACEUTICALS INC.
  Company Number: US-BAYER-2025A072600

PATIENT
  Age: 63 Year
  Sex: Male

DRUGS (11)
  1. JIVI [Suspect]
     Active Substance: DAMOCTOCOG ALFA PEGOL
     Indication: Haemorrhage
     Dosage: JIVI 1999 UNITS, INFUSE 2000/4000 UNITS (+/-10%) AS NEEDED FOR BLEEDING AS DIRECTED
     Route: 042
  2. JIVI [Suspect]
     Active Substance: DAMOCTOCOG ALFA PEGOL
     Indication: Haemorrhage
     Dosage: A MINOR DOSE FOR RIGHT ANKLE BLEED
     Route: 042
     Dates: start: 20250519, end: 20250519
  3. JIVI [Suspect]
     Active Substance: DAMOCTOCOG ALFA PEGOL
     Indication: Haemorrhage
     Dosage: 1 DOSE TO TREAT RIGHT ANKLE BLEED
     Dates: start: 20250613, end: 20250613
  4. JIVI [Suspect]
     Active Substance: DAMOCTOCOG ALFA PEGOL
     Indication: Haemorrhage
     Dosage: 2 DF
     Route: 042
     Dates: start: 202507
  5. JIVI [Suspect]
     Active Substance: DAMOCTOCOG ALFA PEGOL
     Indication: Haemorrhage
     Dosage: 2 DF, INFUSING 2 DOSES OF JIVI FOR HIS RIGHT ANKLE
     Route: 042
     Dates: start: 202507
  6. JIVI [Suspect]
     Active Substance: DAMOCTOCOG ALFA PEGOL
     Indication: Haemorrhage
     Dosage: STRENGTH 1999 UNITS, INFUSE  2000/4000 UNITS (+/-10%) EVERY 24 TO 48 HOURS AS NEEDED
  7. JIVI [Suspect]
     Active Substance: DAMOCTOCOG ALFA PEGOL
     Indication: Haemorrhage
     Dosage: 1 DF
  8. JIVI [Suspect]
     Active Substance: DAMOCTOCOG ALFA PEGOL
     Indication: Haemorrhage
     Dosage: JIVI 2096/4110 IU: INFUSE~2000/4000 UNITS
     Route: 042
  9. JIVI [Suspect]
     Active Substance: DAMOCTOCOG ALFA PEGOL
     Indication: Haemorrhage
     Dosage: 6 DF
     Route: 042
  10. JIVI [Suspect]
     Active Substance: DAMOCTOCOG ALFA PEGOL
     Indication: Haemorrhage
     Dosage: JIVI 2027 IU~INFUSE-2000 UNITS
  11. JIVI [Suspect]
     Active Substance: DAMOCTOCOG ALFA PEGOL
     Indication: Haemorrhage
     Dosage: 1 DF
     Dates: start: 2025

REACTIONS (6)
  - Haemarthrosis [None]
  - Arthropathy [None]
  - Haemarthrosis [Not Recovered/Not Resolved]
  - Haemarthrosis [None]
  - Cartilage atrophy [None]
  - Joint swelling [None]

NARRATIVE: CASE EVENT DATE: 20250519
